FAERS Safety Report 4394953-8 (Version None)
Quarter: 2004Q3

REPORT INFORMATION
  Report Type: 
  Country: None (occurrence: None)
  Receive Date: 20040712
  Receipt Date: 20040628
  Transmission Date: 20050211
  Serious: Yes (Other)
  Sender: FDA-Public Use
  Company Number: GB-GLAXOSMITHKLINE-B0338002A

PATIENT
  Age: 20 Year
  Sex: Female

DRUGS (4)
  1. LITHIUM CARBONATE [Suspect]
     Dosage: 400MG TWICE PER DAY
     Route: 048
     Dates: start: 20000101
  2. CLOZARIL [Suspect]
     Indication: SCHIZOPHRENIA
     Dosage: 200MG PER DAY
     Route: 048
     Dates: start: 20040319
  3. VALPROATE SODIUM [Suspect]
     Dosage: 1G TWICE PER DAY
     Route: 048
     Dates: start: 20000101, end: 20040410
  4. CLONAZEPAM [Concomitant]
     Indication: AGITATION
     Dosage: 1MG FOUR TIMES PER DAY
     Route: 048
     Dates: start: 20040211, end: 20040406

REACTIONS (13)
  - BACK PAIN [None]
  - ENCEPHALOPATHY [None]
  - HAEMATURIA [None]
  - NEUTROPHIL COUNT INCREASED [None]
  - PROTEINURIA [None]
  - PYELONEPHRITIS [None]
  - PYREXIA [None]
  - RENAL FAILURE ACUTE [None]
  - SEPSIS [None]
  - SOMNOLENCE [None]
  - THERAPEUTIC AGENT TOXICITY [None]
  - URINARY TRACT INFECTION [None]
  - WHITE BLOOD CELL COUNT INCREASED [None]
